FAERS Safety Report 19189027 (Version 1)
Quarter: 2021Q2

REPORT INFORMATION
  Report Type: Spontaneous
  Country: US (occurrence: US)
  Receive Date: 20210427
  Receipt Date: 20210427
  Transmission Date: 20210717
  Serious: Yes (Disabling, Other)
  Sender: FDA-Public Use
  Company Number: None

PATIENT
  Age: 33 Year
  Sex: Male
  Weight: 74.25 kg

DRUGS (11)
  1. CBD [Concomitant]
     Active Substance: CANNABIDIOL
  2. BILATERAL NUCLEUS COCHLEAR IMPLANT [Concomitant]
  3. VRAYLAR [Suspect]
     Active Substance: CARIPRAZINE
     Indication: DEPRESSION
     Dosage: ?          QUANTITY:7 CAPSULE(S);?
     Route: 048
  4. TUMERIC COMPLEX [Concomitant]
  5. CAPLYTA [Concomitant]
     Active Substance: LUMATEPERONE
  6. VITAMIN C [Concomitant]
     Active Substance: ASCORBIC ACID
  7. AVALIDE [Concomitant]
     Active Substance: HYDROCHLOROTHIAZIDE\IRBESARTAN
  8. MECLIZINE [Concomitant]
     Active Substance: MECLIZINE HYDROCHLORIDE
  9. DOXEPIN [Concomitant]
     Active Substance: DOXEPIN
  10. MULTIVITAMIN [Concomitant]
     Active Substance: VITAMINS
  11. FISH OIL [Concomitant]
     Active Substance: FISH OIL

REACTIONS (2)
  - Cerebrovascular accident [None]
  - Hypertension [None]

NARRATIVE: CASE EVENT DATE: 20200120
